FAERS Safety Report 9432731 (Version 1)
Quarter: 2013Q3

REPORT INFORMATION
  Report Type: Spontaneous
  Country: US (occurrence: US)
  Receive Date: 20130731
  Receipt Date: 20130731
  Transmission Date: 20140515
  Serious: No
  Sender: FDA-Public Use
  Company Number: US-PFIZER INC-2013219917

PATIENT
  Age: 73 Year
  Sex: Female
  Weight: 54.4 kg

DRUGS (4)
  1. ESTRING [Suspect]
     Indication: OESTROGEN DEFICIENCY
     Dosage: 2 MG, EVERY 3 MONTHS
     Route: 067
  2. PLAVIX [Concomitant]
     Indication: BLOOD CHOLESTEROL INCREASED
     Dosage: 75 MG, 1X/DAY
  3. SIMVASTATIN [Concomitant]
     Indication: BLOOD CHOLESTEROL INCREASED
     Dosage: 40 MG, 1X/DAY
  4. METOPROLOL [Concomitant]
     Indication: PALPITATIONS
     Dosage: 25 MG, 1X/DAY

REACTIONS (3)
  - Product quality issue [Unknown]
  - Nervousness [Unknown]
  - Stress [Unknown]
